FAERS Safety Report 13735320 (Version 1)
Quarter: 2017Q3

REPORT INFORMATION
  Report Type: Spontaneous
  Country: US (occurrence: US)
  Receive Date: 20170707
  Receipt Date: 20170707
  Transmission Date: 20171127
  Serious: No
  Sender: FDA-Public Use
  Company Number: None

PATIENT
  Age: 69 Year
  Sex: Female

DRUGS (1)
  1. AMIKACIN [Suspect]
     Active Substance: AMIKACIN
     Indication: BRONCHIECTASIS
     Dosage: ?          OTHER DOSE:MG;?
     Route: 055
     Dates: start: 20170614

REACTIONS (2)
  - Cough [None]
  - Laryngitis [None]
